FAERS Safety Report 13493344 (Version 2)
Quarter: 2017Q2

REPORT INFORMATION
  Report Type: Spontaneous
  Country: US (occurrence: US)
  Receive Date: 20170427
  Receipt Date: 20170508
  Transmission Date: 20170830
  Serious: Yes (Hospitalization, Other)
  Sender: FDA-Public Use
  Company Number: US-UCBSA-2017016065

PATIENT
  Age: 47 Year
  Sex: Female

DRUGS (8)
  1. SORIATANE [Concomitant]
     Active Substance: ACITRETIN
     Indication: BLISTER
     Dosage: UNK
  2. PREDNISONE. [Concomitant]
     Active Substance: PREDNISONE
     Indication: PRODUCT USED FOR UNKNOWN INDICATION
     Dosage: UNK
  3. PETROLATUM. [Concomitant]
     Active Substance: PETROLATUM
     Indication: BLISTER
     Dosage: UNK
  4. PETROLATUM. [Concomitant]
     Active Substance: PETROLATUM
     Indication: URTICARIA
  5. HYDROCODONE [Concomitant]
     Active Substance: HYDROCODONE
     Indication: PAIN
  6. VICTOZA [Concomitant]
     Active Substance: LIRAGLUTIDE
     Indication: DIABETES MELLITUS
     Dosage: 6.5 MG, QHS
  7. CIMZIA [Suspect]
     Active Substance: CERTOLIZUMAB PEGOL
     Indication: PSORIATIC ARTHROPATHY
     Dosage: 400 MG, EV 2 WEEKS(QOW)
     Dates: start: 201701, end: 2017
  8. SORIATANE [Concomitant]
     Active Substance: ACITRETIN
     Indication: URTICARIA

REACTIONS (8)
  - Hypersensitivity [Not Recovered/Not Resolved]
  - Blood glucose increased [Recovered/Resolved]
  - Hepatic enzyme increased [Recovering/Resolving]
  - Nausea [Not Recovered/Not Resolved]
  - Rash pruritic [Recovering/Resolving]
  - Renal disorder [Unknown]
  - Cellulitis [Recovering/Resolving]
  - Blood pressure increased [Recovering/Resolving]

NARRATIVE: CASE EVENT DATE: 2017
